FAERS Safety Report 6813256-2 (Version None)
Quarter: 2010Q3

REPORT INFORMATION
  Report Type: 
  Country: None (occurrence: None)
  Receive Date: 20100701
  Receipt Date: 20100616
  Transmission Date: 20110219
  Serious: Yes (Death, Hospitalization)
  Sender: FDA-Public Use
  Company Number: SE-PFIZER INC-2010059454

PATIENT
  Age: 75 Year
  Sex: Male
  Weight: 86.8 kg

DRUGS (14)
  1. BLINDED *NO SUBJECT DRUG [Suspect]
     Indication: CARDIAC FAILURE
     Dosage: UNK
     Dates: start: 20080520, end: 20100428
  2. BLINDED *PLACEBO [Suspect]
     Indication: CARDIAC FAILURE
     Dosage: UNK
     Dates: start: 20080520, end: 20100428
  3. EPLERENONE [Suspect]
     Indication: CARDIAC FAILURE
     Dosage: UNK
     Dates: start: 20080520, end: 20100428
  4. ALLOPURINOL [Concomitant]
     Dosage: UNK
     Route: 048
     Dates: start: 20071023, end: 20100610
  5. OMEPRAZOLE [Concomitant]
     Dosage: UNK
     Route: 048
     Dates: start: 20080215, end: 20100610
  6. FUROSEMIDE [Concomitant]
     Dosage: UNK
     Route: 048
     Dates: start: 20011001, end: 20100610
  7. SIMVASTATIN [Concomitant]
     Dosage: UNK
     Route: 048
     Dates: start: 20021126, end: 20100422
  8. ACETYLSALICYLIC ACID [Concomitant]
     Dosage: UNK
     Route: 048
     Dates: start: 20011001, end: 20100610
  9. METOPROLOL [Concomitant]
     Dosage: UNK
     Route: 048
     Dates: start: 20011001, end: 20100610
  10. RAMIPRIL [Concomitant]
     Dosage: UNK
     Route: 048
     Dates: start: 20011001, end: 20100610
  11. VARDENAFIL [Concomitant]
     Dosage: UNK
     Route: 048
     Dates: start: 20080331, end: 20100610
  12. OXYCODONE [Concomitant]
     Dosage: UNK
     Route: 048
     Dates: start: 20100422, end: 20100610
  13. ZOPICLONE [Concomitant]
     Dosage: UNK
     Route: 048
     Dates: start: 20100422, end: 20100610
  14. PARACETAMOL [Concomitant]
     Dosage: UNK
     Route: 048
     Dates: start: 20091119, end: 20100610

REACTIONS (1)
  - METASTASES TO BONE [None]
